FAERS Safety Report 24370894 (Version 2)
Quarter: 2024Q4

REPORT INFORMATION
  Report Type: Spontaneous
  Country: US (occurrence: US)
  Receive Date: 20240927
  Receipt Date: 20241001
  Transmission Date: 20250115
  Serious: Yes (Hospitalization, Other)
  Sender: BOEHRINGER INGELHEIM
  Company Number: US-Komodo Health-a23aa000003N5lHAAS

PATIENT
  Sex: Male

DRUGS (4)
  1. JARDIANCE [Suspect]
     Active Substance: EMPAGLIFLOZIN
     Indication: Cardiac failure
  2. VYNDAMAX [Concomitant]
     Active Substance: TAFAMIDIS
     Indication: Product used for unknown indication
     Dates: start: 20240911
  3. ROSUVASTATIN CALCIUM [Concomitant]
     Active Substance: ROSUVASTATIN CALCIUM
     Indication: Product used for unknown indication
     Dates: start: 20230504
  4. ELIQUIS [Concomitant]
     Active Substance: APIXABAN
     Indication: Product used for unknown indication
     Dates: start: 20210108

REACTIONS (16)
  - Aortic valve disease [Unknown]
  - Aortic valve replacement [Unknown]
  - Cardiac amyloidosis [Unknown]
  - Cardiomyopathy [Unknown]
  - Prostate cancer [Unknown]
  - Oedema [Recovering/Resolving]
  - Cardiac failure [Unknown]
  - Cox-Maze procedure [Unknown]
  - Atrial appendage resection [Unknown]
  - Sinus node dysfunction [Unknown]
  - Cardiac pacemaker insertion [Unknown]
  - Depression [Unknown]
  - Anxiety [Unknown]
  - Hypertension [Unknown]
  - Dyslipidaemia [Unknown]
  - Atrial fibrillation [Unknown]

NARRATIVE: CASE EVENT DATE: 20190101
